FAERS Safety Report 23180266 (Version 2)
Quarter: 2023Q4

REPORT INFORMATION
  Report Type: Spontaneous
  Country: JP (occurrence: JP)
  Receive Date: 20231114
  Receipt Date: 20231204
  Transmission Date: 20240110
  Serious: Yes (Hospitalization)
  Sender: FDA-Public Use
  Company Number: JP-IQVIA-JT2023JP000082

PATIENT
  Age: 82 Year
  Sex: Female
  Weight: 60.5 kg

DRUGS (4)
  1. FERRIC CITRATE ANHYDROUS [Suspect]
     Active Substance: FERRIC CITRATE ANHYDROUS
     Indication: Diabetic nephropathy
     Dosage: 250 MILLIGRAM, BID
     Route: 048
     Dates: end: 20221121
  2. ENARODUSTAT [Suspect]
     Active Substance: ENARODUSTAT
     Indication: Nephrogenic anaemia
     Dosage: 4 MILLIGRAM
     Route: 048
     Dates: start: 20220919, end: 20230819
  3. IRON SUCROSE [Concomitant]
     Active Substance: IRON SUCROSE
     Indication: Nephrogenic anaemia
     Dosage: 40 MILLIGRAM, QWK
     Route: 042
  4. DARBEPOETIN ALFA BS [DARBEPOETIN ALFA BIOSIMILAR 1] [Concomitant]
     Indication: Nephrogenic anaemia
     Dosage: 40 MICROGRAM, QWK
     Route: 042
     Dates: start: 20230821

REACTIONS (3)
  - Carotid arterial embolus [Recovered/Resolved]
  - Product dose omission in error [Recovered/Resolved]
  - Product dose omission in error [Recovered/Resolved]

NARRATIVE: CASE EVENT DATE: 20221225
